FAERS Safety Report 12456912 (Version 2)
Quarter: 2016Q4

REPORT INFORMATION
  Report Type: Spontaneous
  Country: JP (occurrence: JP)
  Receive Date: 20160610
  Receipt Date: 20161028
  Transmission Date: 20170207
  Serious: Yes (Hospitalization)
  Sender: FDA-Public Use
  Company Number: JP-PFIZER INC-2016290301

PATIENT
  Age: 50 Year
  Sex: Male
  Weight: 57.3 kg

DRUGS (1)
  1. CHAMPIX 0.5MG [Suspect]
     Active Substance: VARENICLINE TARTRATE
     Indication: NICOTINE DEPENDENCE
     Dosage: 0.5 MG, 1X/DAY
     Route: 048
     Dates: start: 20160401, end: 20160531

REACTIONS (1)
  - Tobacco withdrawal symptoms [Recovered/Resolved]

NARRATIVE: CASE EVENT DATE: 20160421
